FAERS Safety Report 9158131 (Version 1)
Quarter: 2013Q1

REPORT INFORMATION
  Report Type: Spontaneous
  Country: DE (occurrence: DE)
  Receive Date: 20130312
  Receipt Date: 20130312
  Transmission Date: 20140127
  Serious: Yes (Other)
  Sender: FDA-Public Use
  Company Number: DE-GLAXOSMITHKLINE-D0079072A

PATIENT
  Age: 30 Year
  Sex: Male

DRUGS (1)
  1. ZOVIRAX [Suspect]
     Route: 048

REACTIONS (2)
  - Epilepsy [Unknown]
  - Confusional state [Unknown]
